FAERS Safety Report 19322808 (Version 1)
Quarter: 2021Q2

REPORT INFORMATION
  Report Type: Spontaneous
  Country: GB (occurrence: GB)
  Receive Date: 20210528
  Receipt Date: 20210528
  Transmission Date: 20210717
  Serious: Yes (Other)
  Sender: FDA-Public Use
  Company Number: GB-BAXTER-2021BAX010970

PATIENT
  Age: 20 Year
  Sex: Male
  Weight: 56.24 kg

DRUGS (5)
  1. METRONIDAZOLE 500 MG / 100 ML INTRAVENOUS INFUSION [Suspect]
     Active Substance: METRONIDAZOLE
     Indication: ILL-DEFINED DISORDER
     Route: 042
  2. METRONIDAZOLE. [Suspect]
     Active Substance: METRONIDAZOLE
     Indication: ILL-DEFINED DISORDER
     Dosage: AFTER MEALS
     Route: 048
     Dates: start: 20200513, end: 20200517
  3. METRONIDAZOLE. [Suspect]
     Active Substance: METRONIDAZOLE
     Dosage: DOSE RE?INTRODUCED
     Route: 048
  4. METRONIDAZOLE 500 MG / 100 ML INTRAVENOUS INFUSION [Suspect]
     Active Substance: METRONIDAZOLE
     Dosage: DOSE RE?INTRODUCED
     Route: 042
  5. BISOPROLOL FUMARATE. [Suspect]
     Active Substance: BISOPROLOL FUMARATE
     Indication: ILL-DEFINED DISORDER
     Route: 065

REACTIONS (14)
  - Tremor [Not Recovered/Not Resolved]
  - Blood electrolytes decreased [Not Recovered/Not Resolved]
  - Blindness [Not Recovered/Not Resolved]
  - Postural orthostatic tachycardia syndrome [Not Recovered/Not Resolved]
  - Dyspnoea [Not Recovered/Not Resolved]
  - Vertigo [Not Recovered/Not Resolved]
  - Decreased appetite [Not Recovered/Not Resolved]
  - Personality disorder [Not Recovered/Not Resolved]
  - Constipation [Not Recovered/Not Resolved]
  - Diplegia [Not Recovered/Not Resolved]
  - Anxiety [Not Recovered/Not Resolved]
  - Nausea [Not Recovered/Not Resolved]
  - Polyneuropathy [Not Recovered/Not Resolved]
  - Tachycardia [Not Recovered/Not Resolved]

NARRATIVE: CASE EVENT DATE: 20200513
